FAERS Safety Report 16132862 (Version 3)
Quarter: 2019Q2

REPORT INFORMATION
  Report Type: Spontaneous
  Country: US (occurrence: US)
  Receive Date: 20190329
  Receipt Date: 20190403
  Transmission Date: 20190711
  Serious: Yes (Hospitalization, Other)
  Sender: FDA-Public Use
  Company Number: US-SA-2019SA081169

PATIENT
  Age: 53 Year
  Sex: Female

DRUGS (1)
  1. LANTUS SOLOSTAR [Suspect]
     Active Substance: INSULIN GLARGINE
     Indication: TYPE 2 DIABETES MELLITUS
     Dosage: 30 AM - 30 PM, BID
     Route: 065

REACTIONS (12)
  - Inappropriate schedule of product administration [Unknown]
  - Myocardial infarction [Unknown]
  - Choking [Unknown]
  - Wrong technique in product usage process [Unknown]
  - Product storage error [Unknown]
  - Myocardial infarction [Unknown]
  - Oesophageal oedema [Unknown]
  - Pain in extremity [Unknown]
  - Chest discomfort [Unknown]
  - Back pain [Unknown]
  - Product dose omission [Unknown]
  - Product dispensing error [Unknown]

NARRATIVE: CASE EVENT DATE: 20190114
